FAERS Safety Report 14869633 (Version 3)
Quarter: 2018Q2

REPORT INFORMATION
  Report Type: Spontaneous
  Country: US (occurrence: US)
  Receive Date: 20180509
  Receipt Date: 20180601
  Transmission Date: 20180711
  Serious: No
  Sender: FDA-Public Use
  Company Number: US-VERTEX PHARMACEUTICALS-2018-003016

PATIENT
  Age: 29 Year
  Sex: Male

DRUGS (1)
  1. SYMDEKO [Suspect]
     Active Substance: IVACAFTOR\TEZACAFTOR
     Indication: CYSTIC FIBROSIS
     Dosage: 100MG TEZACAFTOR/150MG IVACAFTOR AM; 150MG IVACAFTOR PM
     Route: 048
     Dates: start: 20180406, end: 20180430

REACTIONS (7)
  - Decreased appetite [Recovered/Resolved]
  - Rash papular [Recovered/Resolved]
  - Insomnia [Recovered/Resolved]
  - Conjunctivitis [Recovered/Resolved]
  - Weight decreased [Recovering/Resolving]
  - Tinnitus [Recovered/Resolved]
  - Fatigue [Recovered/Resolved]

NARRATIVE: CASE EVENT DATE: 201804
